FAERS Safety Report 23803101 (Version 1)
Quarter: 2024Q2

REPORT INFORMATION
  Report Type: Spontaneous
  Country: US (occurrence: None)
  Receive Date: 20240430
  Receipt Date: 20240430
  Transmission Date: 20240716
  Serious: Yes (Other)
  Sender: FDA-Public Use
  Company Number: None

PATIENT
  Age: 72 Year
  Sex: Female
  Weight: 60.75 kg

DRUGS (7)
  1. CIPROFLOXACIN [Suspect]
     Active Substance: CIPROFLOXACIN
     Indication: Sinusitis
     Dosage: 1 TABLET EVERY 12 HOURS ORAL?
     Route: 048
     Dates: start: 20240423, end: 20240425
  2. SIMVASTATIN [Concomitant]
     Active Substance: SIMVASTATIN
  3. ESTRADIOL [Concomitant]
     Active Substance: ESTRADIOL
  4. FLUOXETINE [Concomitant]
     Active Substance: FLUOXETINE HYDROCHLORIDE
  5. ALPRAZOLAM [Concomitant]
     Active Substance: ALPRAZOLAM
  6. WOMEN^S PROBIOTIC [Concomitant]
  7. CLARITIN [Concomitant]
     Active Substance: LORATADINE

REACTIONS (14)
  - Pyrexia [None]
  - Dizziness [None]
  - Nonspecific reaction [None]
  - Dysstasia [None]
  - Movement disorder [None]
  - Asthenia [None]
  - Throat tightness [None]
  - Heart rate increased [None]
  - Abdominal pain upper [None]
  - Fear [None]
  - Pruritus [None]
  - Rash [None]
  - Urticaria [None]
  - Hypersensitivity [None]

NARRATIVE: CASE EVENT DATE: 20240425
